FAERS Safety Report 8180928 (Version 2)
Quarter: 2013Q1

REPORT INFORMATION
  Report Type: Spontaneous
  Country: US (occurrence: None)
  Receive Date: 20110921
  Receipt Date: 20121004
  Transmission Date: 20140127
  Serious: Yes (Life-Threatening, Hospitalization)
  Sender: FDA-Public Use
  Company Number: 2011029802

PATIENT
  Age: 65 Year
  Sex: Female
  Weight: 47.63 kg

DRUGS (23)
  1. HIZENTRA [Suspect]
     Indication: HYPOGAMMAGLOBULINAEMIA
     Dosage: (4 G 1XWEEK, INFUSED VIA TWO SITES (275 ML PER HOUR) SUBCUTANEOUS)
     Dates: start: 20100928
  2. HIZENTRA [Suspect]
     Indication: IMMUNODEFICIENCY COMMON VARIABLE
     Dosage: (4 G 1XWEEK, INFUSED VIA TWO SITES (275 ML PER HOUR) SUBCUTANEOUS)
     Dates: start: 20100928
  3. SINGULAIR [Concomitant]
  4. ZOFRAN [Concomitant]
  5. ADVAIR DISKUS [Concomitant]
  6. METOPROLOL TARTRATE [Concomitant]
  7. SYMBICORT [Concomitant]
  8. NEXIUM [Concomitant]
  9. ASPIRIN (ACETYLSALICYLIC ACID) [Concomitant]
  10. BENTYL [Concomitant]
  11. XOPENEX [Concomitant]
  12. AMITRIPTYLINE HYDROCHLORIDE [Concomitant]
  13. MUCINEX [Concomitant]
  14. ALLEGRA [Concomitant]
  15. ACETAMINOPHEN (PARACETAMOL) [Concomitant]
  16. FOSAMAX [Concomitant]
  17. IMITREX (SUMATRIPTAN) [Concomitant]
  18. FLONASE (FLUTICASONE PROPIONATE) [Concomitant]
  19. DIPHENHYDRAMINE (DIPHENHYDRAMINE) [Concomitant]
  20. LIDOCAINE (LIDOCAINE) [Concomitant]
  21. EPI-PEN (EPINEPHRINE HYDROCHLORIDE) [Concomitant]
  22. PATANASE (OLOPATADINE) [Concomitant]
  23. BUDESONIDE (BUDESONIDE) [Concomitant]

REACTIONS (5)
  - Hypertension [None]
  - Atrial fibrillation [None]
  - Myocardial infarction [None]
  - Heart rate increased [None]
  - Asthenia [None]
